FAERS Safety Report 5797793-8 (Version None)
Quarter: 2008Q3

REPORT INFORMATION
  Report Type: 
  Country: None (occurrence: None)
  Receive Date: 20080702
  Receipt Date: 20080623
  Transmission Date: 20090109
  Serious: Yes (Other)
  Sender: FDA-Public Use
  Company Number: CN-NOVOPROD-276821

PATIENT
  Age: 53 Year
  Sex: Male
  Weight: 100 kg

DRUGS (4)
  1. NOVOLOG MIX 70/30 [Suspect]
     Indication: INSULIN-REQUIRING TYPE 2 DIABETES MELLITUS
     Dosage: 29 IU IN MORNING AND 22 IU AT NIGHT
     Dates: start: 20080311, end: 20080620
  2. NOVORAPID FLEXPEN [Suspect]
     Indication: INSULIN-REQUIRING TYPE 2 DIABETES MELLITUS
     Dosage: NOT REPORTED
     Dates: start: 20080301
  3. NOVOLIN N PENFILL [Suspect]
     Indication: INSULIN-REQUIRING TYPE 2 DIABETES MELLITUS
     Dosage: NOT REPORTED
     Dates: start: 20080301
  4. DIOVAN                             /01319601/ [Concomitant]
     Dosage: 80 MG, UNK
     Route: 048
     Dates: start: 20080529

REACTIONS (7)
  - DYSPNOEA [None]
  - HEADACHE [None]
  - HYPERHIDROSIS [None]
  - HYPOAESTHESIA ORAL [None]
  - INJECTION SITE PRURITUS [None]
  - NAUSEA [None]
  - RASH GENERALISED [None]
